FAERS Safety Report 7364020-X (Version None)
Quarter: 2011Q1

REPORT INFORMATION
  Report Type: 
  Country: None (occurrence: None)
  Receive Date: 20110214
  Receipt Date: 20101102
  Transmission Date: 20110831
  Serious: Yes (Life-Threatening)
  Sender: FDA-Public Use
  Company Number: US-IGSA-IG726

PATIENT
  Age: 40 Year
  Sex: Male
  Weight: 109.1 kg

DRUGS (2)
  1. FLEBOGAMMA 5% DIF [Suspect]
  2. FLEBOGAMMA 5% DIF [Suspect]
     Indication: GUILLAIN-BARRE SYNDROME
     Dosage: 45 G IV
     Route: 042
     Dates: start: 20101011, end: 20101011

REACTIONS (4)
  - COUGH [None]
  - DYSPNOEA [None]
  - BREATH SOUNDS ABNORMAL [None]
  - OXYGEN SATURATION DECREASED [None]
